FAERS Safety Report 7916943 (Version 2)
Quarter: 2013Q4

REPORT INFORMATION
  Report Type: Spontaneous
  Country: US (occurrence: US)
  Receive Date: 20110427
  Receipt Date: 20131028
  Transmission Date: 20140711
  Serious: No
  Sender: FDA-Public Use
  Company Number: US-JNJFOC-20110407364

PATIENT
  Age: 42 Year
  Sex: Male

DRUGS (5)
  1. INVEGA SUSTENNA [Suspect]
     Indication: SCHIZOAFFECTIVE DISORDER
     Route: 030
     Dates: start: 2010
  2. PROLIXIN [Concomitant]
     Indication: SCHIZOAFFECTIVE DISORDER
     Route: 048
  3. CELEXA [Concomitant]
     Indication: DEPRESSION
     Route: 048
  4. COGENTIN [Concomitant]
     Route: 048
  5. DEPAKOTE [Concomitant]
     Indication: DRUG THERAPY
     Route: 048

REACTIONS (2)
  - Inappropriate schedule of drug administration [Recovered/Resolved]
  - Device leakage [Unknown]
